FAERS Safety Report 5666889-3 (Version None)
Quarter: 2008Q1

REPORT INFORMATION
  Report Type: 
  Country: None (occurrence: None)
  Receive Date: 20080315
  Receipt Date: 20080107
  Transmission Date: 20080703
  Serious: No
  Sender: FDA-Public Use
  Company Number: US-ABBOTT-08P-163-0432581-00

PATIENT
  Sex: Male
  Weight: 108.96 kg

DRUGS (3)
  1. HUMIRA [Suspect]
     Indication: ANKYLOSING SPONDYLITIS
     Route: 058
     Dates: start: 20070601, end: 20071201
  2. HUMIRA [Suspect]
     Route: 058
     Dates: start: 20071201
  3. FLUOXETINE HYDROCHLORIDE [Suspect]
     Indication: DEPRESSION
     Route: 048
     Dates: start: 20071101, end: 20071201

REACTIONS (9)
  - ABDOMINAL DISTENSION [None]
  - ANKYLOSING SPONDYLITIS [None]
  - ARTHRALGIA [None]
  - DIZZINESS [None]
  - FATIGUE [None]
  - JOINT SWELLING [None]
  - MUSCLE TWITCHING [None]
  - PANIC ATTACK [None]
  - SUICIDAL IDEATION [None]
